FAERS Safety Report 19008044 (Version 5)
Quarter: 2021Q2

REPORT INFORMATION
  Report Type: Spontaneous
  Country: US (occurrence: US)
  Receive Date: 20210315
  Receipt Date: 20210608
  Transmission Date: 20210717
  Serious: Yes (Hospitalization, Other)
  Sender: FDA-Public Use
  Company Number: US-AMGEN-USASP2021036665

PATIENT
  Age: 46 Year
  Sex: Male

DRUGS (10)
  1. BLINCYTO [Suspect]
     Active Substance: BLINATUMOMAB
     Dosage: 9 MICROGRAM, QD
     Route: 065
     Dates: start: 20210222, end: 202102
  2. BLINCYTO [Suspect]
     Active Substance: BLINATUMOMAB
     Dosage: 9 MICROGRAM, QD
     Route: 065
     Dates: start: 20210323, end: 20210326
  3. BLINCYTO [Suspect]
     Active Substance: BLINATUMOMAB
     Indication: ACUTE LYMPHOCYTIC LEUKAEMIA
     Dosage: UNK
     Route: 065
     Dates: start: 20201229, end: 20210107
  4. BLINCYTO [Suspect]
     Active Substance: BLINATUMOMAB
     Dosage: 16 MICROGRAM
     Route: 065
  5. BENZOSED [MIDAZOLAM HYDROCHLORIDE] [Concomitant]
  6. BLINCYTO [Suspect]
     Active Substance: BLINATUMOMAB
     Dosage: 28 MICROGRAM, QD
     Route: 065
     Dates: start: 202102, end: 2021
  7. SERTRALINE [Concomitant]
     Active Substance: SERTRALINE HYDROCHLORIDE
     Dosage: 30?50 MG
  8. BLINCYTO [Suspect]
     Active Substance: BLINATUMOMAB
     Dosage: 20 MICROGRAM
     Route: 065
     Dates: start: 20210328, end: 20210331
  9. BLINCYTO [Suspect]
     Active Substance: BLINATUMOMAB
     Dosage: 28 MICROGRAM
     Route: 065
     Dates: start: 20210327, end: 202103
  10. FLUOXETINE [Concomitant]
     Active Substance: FLUOXETINE HYDROCHLORIDE

REACTIONS (12)
  - Neurotoxicity [Unknown]
  - Hyperphosphataemia [Unknown]
  - Intentional overdose [Unknown]
  - Confusional state [Unknown]
  - Balance disorder [Unknown]
  - Tremor [Unknown]
  - Staphylococcal bacteraemia [Unknown]
  - Anxiety [Unknown]
  - Neutropenia [Recovered/Resolved]
  - Unevaluable event [Unknown]
  - Cystitis [Unknown]
  - Suicide attempt [Unknown]

NARRATIVE: CASE EVENT DATE: 202101
